FAERS Safety Report 9111475 (Version 1)
Quarter: 2013Q1

REPORT INFORMATION
  Report Type: Spontaneous
  Country: US (occurrence: US)
  Receive Date: 20130219
  Receipt Date: 20130219
  Transmission Date: 20140127
  Serious: No
  Sender: FDA-Public Use
  Company Number: US-BRISTOL-MYERS SQUIBB COMPANY-17103706

PATIENT
  Age: 62 Year
  Sex: Female

DRUGS (26)
  1. ORENCIA FOR INJ [Suspect]
     Indication: RHEUMATOID ARTHRITIS
     Dosage: SECOND DOSE:9NOV12
     Route: 042
     Dates: start: 20121023
  2. NIACIN [Concomitant]
  3. GINKOBA [Concomitant]
  4. VITAMIN B6 [Concomitant]
  5. VITAMIN B12 [Concomitant]
  6. K-DUR [Concomitant]
  7. LYSINE [Concomitant]
  8. PROTONIX [Concomitant]
  9. FISH OIL [Concomitant]
  10. FEXOFENADINE HCL [Concomitant]
  11. PROBIOTICA [Concomitant]
  12. PSEUDOEPHEDRINE [Concomitant]
  13. SEROQUEL [Concomitant]
  14. CITALOPRAM [Concomitant]
  15. METFORMIN [Concomitant]
  16. RISPERDAL [Concomitant]
  17. CALCIUM [Concomitant]
  18. VITAMIN D [Concomitant]
  19. METHADONE [Concomitant]
  20. CYCLOBENZAPRINE [Concomitant]
  21. FOLIC ACID [Concomitant]
  22. FUROSEMIDE [Concomitant]
  23. LEVOTHYROXINE [Concomitant]
  24. PLAQUENIL [Concomitant]
  25. DICLOFENAC [Concomitant]
  26. LANTUS [Concomitant]

REACTIONS (4)
  - Local swelling [Unknown]
  - Pain in extremity [Unknown]
  - Vomiting [Recovered/Resolved]
  - Diarrhoea [Recovered/Resolved]
